FAERS Safety Report 21437748 (Version 6)
Quarter: 2023Q4

REPORT INFORMATION
  Report Type: Report from Study
  Country: US (occurrence: US)
  Receive Date: 20221011
  Receipt Date: 20231107
  Transmission Date: 20240109
  Serious: Yes (Hospitalization, Other)
  Sender: FDA-Public Use
  Company Number: US-ABBVIE-4148011

PATIENT
  Age: 89 Year
  Sex: Male

DRUGS (3)
  1. IMBRUVICA [Suspect]
     Active Substance: IBRUTINIB
     Indication: Chronic lymphocytic leukaemia
     Dosage: FORM OF STRENGTH 140MG CAPSULES (420MG DAILY)
     Route: 048
     Dates: start: 20161103, end: 20180512
  2. IMBRUVICA [Suspect]
     Active Substance: IBRUTINIB
     Indication: Chronic lymphocytic leukaemia
     Dosage: FORM OF STRENGTH 420 MILIGRAMS
     Route: 048
     Dates: start: 201805
  3. IMBRUVICA [Suspect]
     Active Substance: IBRUTINIB
     Indication: Chronic lymphocytic leukaemia
     Dosage: FORM OF STRENGTH 420 MILLIGRAM
     Route: 048
     Dates: start: 20201201

REACTIONS (11)
  - COVID-19 [Recovered/Resolved]
  - Hypophagia [Unknown]
  - Muscle spasms [Unknown]
  - Peripheral swelling [Unknown]
  - Constipation [Unknown]
  - Weight decreased [Unknown]
  - Asthenia [Recovered/Resolved]
  - Intracardiac mass [Unknown]
  - Unevaluable event [Unknown]
  - COVID-19 [Recovering/Resolving]
  - Asthenia [Unknown]

NARRATIVE: CASE EVENT DATE: 20220901
